FAERS Safety Report 16685864 (Version 4)
Quarter: 2020Q3

REPORT INFORMATION
  Report Type: Spontaneous
  Country: US (occurrence: US)
  Receive Date: 20190809
  Receipt Date: 20200709
  Transmission Date: 20201102
  Serious: Yes (Other)
  Sender: FDA-Public Use
  Company Number: US-TEVA-2019-US-1089257

PATIENT
  Sex: Female

DRUGS (14)
  1. OMEPRAZOLE. [Concomitant]
     Active Substance: OMEPRAZOLE
  2. JANUVIA [Concomitant]
     Active Substance: SITAGLIPTIN PHOSPHATE
  3. ACITRETIN. [Suspect]
     Active Substance: ACITRETIN
     Indication: PSORIASIS
     Dosage: 25 MILLIGRAM DAILY;
     Route: 065
     Dates: start: 20190711, end: 20190808
  4. POTASSIUM [Concomitant]
     Active Substance: POTASSIUM
  5. LISINOPRIL. [Concomitant]
     Active Substance: LISINOPRIL
  6. ACITRETIN. [Suspect]
     Active Substance: ACITRETIN
     Route: 048
  7. AMLODIPINE [Concomitant]
     Active Substance: AMLODIPINE BESYLATE
  8. FUROSEMIDE. [Concomitant]
     Active Substance: FUROSEMIDE
  9. ROSUVASTATIN. [Concomitant]
     Active Substance: ROSUVASTATIN
  10. ASPIRIN. [Concomitant]
     Active Substance: ASPIRIN
  11. METFORMIN [Concomitant]
     Active Substance: METFORMIN HYDROCHLORIDE
  12. METOPROLOL. [Concomitant]
     Active Substance: METOPROLOL
  13. CLOPIDOGREL [Concomitant]
     Active Substance: CLOPIDOGREL BISULFATE
  14. CILOSTAZOL. [Concomitant]
     Active Substance: CILOSTAZOL

REACTIONS (10)
  - Alopecia [Not Recovered/Not Resolved]
  - Diabetes mellitus [Unknown]
  - Skin exfoliation [Not Recovered/Not Resolved]
  - Glycosylated haemoglobin increased [Recovering/Resolving]
  - Madarosis [Not Recovered/Not Resolved]
  - Skin irritation [Not Recovered/Not Resolved]
  - Pruritus [Unknown]
  - Lip exfoliation [Not Recovered/Not Resolved]
  - Hyperhidrosis [Unknown]
  - Photosensitivity reaction [Unknown]
